FAERS Safety Report 15834732 (Version 7)
Quarter: 2021Q3

REPORT INFORMATION
  Report Type: Report from Study
  Country: US (occurrence: US)
  Receive Date: 20190116
  Receipt Date: 20210909
  Transmission Date: 20211014
  Serious: Yes (Other)
  Sender: FDA-Public Use
  Company Number: US-PFIZER INC-2018516747

PATIENT
  Age: 81 Year
  Sex: Female

DRUGS (1)
  1. XELJANZ XR [Suspect]
     Active Substance: TOFACITINIB CITRATE
     Indication: RHEUMATOID ARTHRITIS
     Dosage: 11 MG, 1X/DAY
     Route: 048
     Dates: start: 201810

REACTIONS (18)
  - Limb discomfort [Unknown]
  - Finger deformity [Unknown]
  - Depression [Not Recovered/Not Resolved]
  - Increased tendency to bruise [Unknown]
  - Renal impairment [Unknown]
  - Muscular weakness [Recovered/Resolved]
  - Pain in extremity [Not Recovered/Not Resolved]
  - Osteoporosis [Unknown]
  - Rash [Not Recovered/Not Resolved]
  - Contusion [Unknown]
  - Myalgia [Unknown]
  - Ear infection [Unknown]
  - Fatigue [Unknown]
  - Condition aggravated [Not Recovered/Not Resolved]
  - Laboratory test abnormal [Unknown]
  - Condition aggravated [Unknown]
  - Facial pain [Recovered/Resolved]
  - Gait disturbance [Unknown]

NARRATIVE: CASE EVENT DATE: 201904
